FAERS Safety Report 5337049-0 (Version None)
Quarter: 2007Q2

REPORT INFORMATION
  Report Type: 
  Country: None (occurrence: None)
  Receive Date: 20070524
  Receipt Date: 20070420
  Transmission Date: 20071010
  Serious: No
  Sender: FDA-Public Use
  Company Number: FR-GUERBET-20070098

PATIENT
  Age: 56 Year
  Sex: Male
  Weight: 85 kg

DRUGS (1)
  1. DOTAREM: 06GD040A / MEGLUMINE GADOTERATE [Suspect]
     Indication: NUCLEAR MAGNETIC RESONANCE IMAGING
     Dosage: 15 ML MILLILITRE(S), UNSPECIFIED INTERVAL, INTRAVENOUS (NOT OTHERWISE SPECIFIED)
     Route: 042
     Dates: start: 20070420, end: 20070420

REACTIONS (5)
  - HEADACHE [None]
  - HYPERHIDROSIS [None]
  - NAUSEA [None]
  - TACHYCARDIA [None]
  - VOMITING [None]
